FAERS Safety Report 7614162-6 (Version None)
Quarter: 2011Q3

REPORT INFORMATION
  Report Type: 
  Country: None (occurrence: None)
  Receive Date: 20110711
  Receipt Date: 20110228
  Transmission Date: 20111222
  Serious: Yes (Other)
  Sender: FDA-Public Use
  Company Number: DSU-2011-01479

PATIENT

DRUGS (1)
  1. BENICAR [Suspect]
     Indication: HYPERTENSION
     Dosage: PER ORAL
     Route: 048
     Dates: end: 20110103

REACTIONS (8)
  - BLOOD PRESSURE INCREASED [None]
  - EPISTAXIS [None]
  - FATIGUE [None]
  - DIZZINESS POSTURAL [None]
  - NERVOUSNESS [None]
  - WEIGHT INCREASED [None]
  - IRRITABILITY [None]
  - VERTIGO [None]
